FAERS Safety Report 6407484-8 (Version None)
Quarter: 2009Q4

REPORT INFORMATION
  Report Type: 
  Country: None (occurrence: None)
  Receive Date: 20091020
  Receipt Date: 20091009
  Transmission Date: 20100525
  Serious: Yes (Other)
  Sender: FDA-Public Use
  Company Number: GB-JNJFOC-20090903329

PATIENT
  Sex: Female

DRUGS (3)
  1. PARACETAMOL [Suspect]
  2. PARACETAMOL [Suspect]
     Indication: MIGRAINE
  3. SOLPADEINE PLUS [Concomitant]
     Indication: MIGRAINE

REACTIONS (2)
  - DYSPNOEA [None]
  - HYPERHIDROSIS [None]
